FAERS Safety Report 18013897 (Version 1)
Quarter: 2020Q3

REPORT INFORMATION
  Report Type: Spontaneous
  Country: US (occurrence: US)
  Receive Date: 20200712
  Receipt Date: 20200712
  Transmission Date: 20201103
  Serious: Yes (Other)
  Sender: FDA-Public Use
  Company Number: None

PATIENT
  Age: 67 Year
  Sex: Female
  Weight: 49.5 kg

DRUGS (5)
  1. NITROFURANTOIN MONOHYDRATE MACROCRYSTALS [Suspect]
     Active Substance: NITROFURANTOIN\NITROFURANTOIN MONOHYDRATE
     Indication: URINARY TRACT INFECTION
     Dosage: ?          QUANTITY:1 CAPSULE(S);?
     Route: 048
     Dates: start: 20200622, end: 20200626
  2. XIIDRA [Concomitant]
     Active Substance: LIFITEGRAST
  3. CALCIUM [Concomitant]
     Active Substance: CALCIUM
  4. PREMARIN [Concomitant]
     Active Substance: ESTROGENS, CONJUGATED
  5. I?MEDS (LUTIEN) [Concomitant]

REACTIONS (7)
  - Skin burning sensation [None]
  - Urticaria [None]
  - Cough [None]
  - Malaise [None]
  - Pruritus [None]
  - Fatigue [None]
  - Joint swelling [None]

NARRATIVE: CASE EVENT DATE: 20200627
